FAERS Safety Report 11837124 (Version 1)
Quarter: 2015Q4

REPORT INFORMATION
  Report Type: Spontaneous
  Country: US (occurrence: US)
  Receive Date: 20151215
  Receipt Date: 20151215
  Transmission Date: 20160305
  Serious: No
  Sender: FDA-Public Use
  Company Number: US-LANNETT COMPANY, INC.-1045506

PATIENT
  Age: 74 Year
  Sex: Female

DRUGS (1)
  1. DOXYCYCLINE HYCLATE. [Suspect]
     Active Substance: DOXYCYCLINE HYCLATE
     Indication: NEURODERMATITIS
     Route: 048

REACTIONS (4)
  - Headache [Recovered/Resolved]
  - Abdominal pain [Unknown]
  - Gait disturbance [Unknown]
  - Nausea [Unknown]
